FAERS Safety Report 16862523 (Version 1)
Quarter: 2019Q3

REPORT INFORMATION
  Report Type: Spontaneous
  Country: CN (occurrence: CN)
  Receive Date: 20190927
  Receipt Date: 20190927
  Transmission Date: 20191005
  Serious: Yes (Other)
  Sender: FDA-Public Use
  Company Number: CN-ASTRAZENECA-2019SF34376

PATIENT
  Age: 64 Year
  Sex: Male
  Weight: 66 kg

DRUGS (1)
  1. IRESSA [Suspect]
     Active Substance: GEFITINIB
     Indication: NON-SMALL CELL LUNG CANCER
     Route: 048
     Dates: start: 201803, end: 201908

REACTIONS (4)
  - Metastasis [Unknown]
  - Rash [Not Recovered/Not Resolved]
  - Drug resistance [Unknown]
  - Carcinoembryonic antigen increased [Unknown]

NARRATIVE: CASE EVENT DATE: 201908
